FAERS Safety Report 7674615-1 (Version None)
Quarter: 2011Q3

REPORT INFORMATION
  Report Type: 
  Country: None (occurrence: None)
  Receive Date: 20110810
  Receipt Date: 20110803
  Transmission Date: 20111222
  Serious: Yes (Death, Other)
  Sender: FDA-Public Use
  Company Number: US-PFIZER INC-2011098937

PATIENT
  Sex: Male

DRUGS (4)
  1. SUTENT [Suspect]
     Dosage: 50 MG, 1X/DAY, FOR 28 DAYS Q 42
     Route: 048
     Dates: start: 20110425
  2. GLYBURIDE [Concomitant]
  3. SUTENT [Suspect]
     Indication: METASTATIC RENAL CELL CARCINOMA
     Dosage: 50 MG ALTERNATING WITH 25 MG DAILY, X 4 WEEKS
     Route: 048
     Dates: start: 20110314, end: 20110501
  4. ACTOS [Concomitant]

REACTIONS (4)
  - HAEMORRHOIDAL HAEMORRHAGE [None]
  - DISEASE PROGRESSION [None]
  - WEIGHT DECREASED [None]
  - METASTATIC RENAL CELL CARCINOMA [None]
